FAERS Safety Report 15590851 (Version 3)
Quarter: 2020Q1

REPORT INFORMATION
  Report Type: Spontaneous
  Country: US (occurrence: US)
  Receive Date: 20181106
  Receipt Date: 20200124
  Transmission Date: 20200409
  Serious: Yes (Other)
  Sender: FDA-Public Use
  Company Number: US-PFIZER INC-2018311530

PATIENT
  Age: 61 Year
  Sex: Male

DRUGS (2)
  1. LYRICA [Suspect]
     Active Substance: PREGABALIN
     Indication: TYPE 1 DIABETES MELLITUS
  2. LYRICA [Suspect]
     Active Substance: PREGABALIN
     Indication: POST-TRAUMATIC PAIN
     Dosage: 75 MG, 3X/DAY
     Route: 048

REACTIONS (3)
  - Joint injury [Unknown]
  - Lower limb fracture [Unknown]
  - Fall [Unknown]
